FAERS Safety Report 5659831-2 (Version None)
Quarter: 2008Q1

REPORT INFORMATION
  Report Type: 
  Country: None (occurrence: None)
  Receive Date: 20080311
  Receipt Date: 20070718
  Transmission Date: 20080703
  Serious: No
  Sender: FDA-Public Use
  Company Number: US-BAYER-200712324BCC

PATIENT
  Age: 32 Year
  Sex: Male
  Weight: 68 kg

DRUGS (4)
  1. ALEVE (CAPLET) [Suspect]
     Indication: BACK PAIN
     Dosage: TOTAL DAILY DOSE: 440 MG  UNIT DOSE: 220 MG
     Route: 048
     Dates: start: 20070717
  2. ALEVE (CAPLET) [Suspect]
     Dosage: TOTAL DAILY DOSE: 220 MG  UNIT DOSE: 220 MG
     Route: 048
     Dates: start: 20070718
  3. IBUPROFEN [Suspect]
     Indication: BACK PAIN
     Route: 048
     Dates: start: 20070718
  4. LORTAB [Concomitant]

REACTIONS (1)
  - NO ADVERSE EVENT [None]
